FAERS Safety Report 25925502 (Version 2)
Quarter: 2025Q4

REPORT INFORMATION
  Report Type: Spontaneous
  Country: EU (occurrence: EU)
  Receive Date: 20251015
  Receipt Date: 20251021
  Transmission Date: 20260118
  Serious: Yes (Death, Other)
  Sender: HIKMA
  Company Number: None

PATIENT
  Age: 21 Year
  Sex: Female
  Weight: 56 kg

DRUGS (6)
  1. LOVENOX [Suspect]
     Active Substance: ENOXAPARIN SODIUM
     Indication: Prophylaxis
     Dosage: 6000 INTERNATIONAL UNIT PER GRAM
     Route: 058
     Dates: start: 20250516, end: 20250521
  2. LOVENOX [Suspect]
     Active Substance: ENOXAPARIN SODIUM
     Indication: Vena cava thrombosis
     Dosage: 6000 INTERNATIONAL UNIT PER GRAM
     Route: 058
     Dates: start: 20250428, end: 20250513
  3. LOVENOX [Suspect]
     Active Substance: ENOXAPARIN SODIUM
     Dosage: UNKNOWN
     Route: 058
     Dates: start: 20250523, end: 20250525
  4. PREDNISONE [Interacting]
     Active Substance: PREDNISONE
     Indication: Febrile infection-related epilepsy syndrome
     Dosage: 60 MILLIGRAM
     Route: 048
     Dates: start: 20250507, end: 20250525
  5. METHYLPREDNISOLONE [Interacting]
     Active Substance: METHYLPREDNISOLONE
     Indication: Febrile infection-related epilepsy syndrome
     Dosage: 40 MILLIGRAM
     Route: 037
     Dates: start: 20250523, end: 20250523
  6. PIPERACILLIN AND TAZOBACTAM [Interacting]
     Active Substance: PIPERACILLIN SODIUM\TAZOBACTAM SODIUM
     Indication: Antibiotic therapy
     Dosage: 2G/0.25G
     Route: 042
     Dates: start: 20250525, end: 20250525

REACTIONS (2)
  - Haemorrhage [Fatal]
  - Labelled drug-drug interaction issue [Not Recovered/Not Resolved]

NARRATIVE: CASE EVENT DATE: 20250525
